FAERS Safety Report 4749841-1 (Version None)
Quarter: 2005Q3

REPORT INFORMATION
  Report Type: 
  Country: None (occurrence: None)
  Receive Date: 20050818
  Receipt Date: 20050808
  Transmission Date: 20060218
  Serious: Yes (Other)
  Sender: FDA-Public Use
  Company Number: 200512497GDS

PATIENT
  Age: 71 Year
  Sex: Male

DRUGS (2)
  1. ASPIRIN [Suspect]
     Indication: CEREBRAL INFARCTION
  2. DIPYRIDAMOLE [Suspect]
     Indication: CEREBRAL INFARCTION

REACTIONS (5)
  - DEEP VEIN THROMBOSIS [None]
  - DISEASE RECURRENCE [None]
  - HEMIPARESIS [None]
  - HYPERCOAGULATION [None]
  - ISCHAEMIC STROKE [None]
